FAERS Safety Report 9701634 (Version 1)
Quarter: 2013Q4

REPORT INFORMATION
  Report Type: Spontaneous
  Country: US (occurrence: US)
  Receive Date: 20131119
  Receipt Date: 20131119
  Transmission Date: 20140711
  Serious: Yes (Other)
  Sender: FDA-Public Use
  Company Number: US-ORACLE-2011S1000063

PATIENT
  Age: 23 Year
  Sex: Male

DRUGS (6)
  1. KRYSTEXXA INJECTION [Suspect]
     Indication: GOUT
     Route: 042
     Dates: start: 20110811, end: 20110811
  2. DECADRON /00016001/ [Concomitant]
     Indication: PREMEDICATION
     Route: 042
     Dates: start: 20110811, end: 20110811
  3. BENADRYL /01563701/ [Concomitant]
     Indication: PREMEDICATION
     Route: 042
     Dates: start: 20110811, end: 20110811
  4. BENADRYL /01563701/ [Concomitant]
     Indication: PREMEDICATION
     Route: 042
     Dates: start: 20110811, end: 20110811
  5. BENADRYL /01563701/ [Concomitant]
     Indication: PREMEDICATION
     Route: 042
     Dates: start: 20110811, end: 20110811
  6. ALLOPURINOL [Concomitant]
     Indication: PRODUCT USED FOR UNKNOWN INDICATION
     Dates: end: 201108

REACTIONS (1)
  - Anaphylactic reaction [Unknown]
